FAERS Safety Report 5178833-6 (Version None)
Quarter: 2006Q4

REPORT INFORMATION
  Report Type: 
  Country: None (occurrence: None)
  Receive Date: 20061208
  Receipt Date: 20061127
  Transmission Date: 20070319
  Serious: Yes (Disabling)
  Sender: FDA-Public Use
  Company Number: CIP06002855

PATIENT
  Age: 59 Year
  Sex: Female
  Weight: 50 kg

DRUGS (6)
  1. ACTONEL [Suspect]
     Indication: OSTEOPOROSIS
     Dosage: 35 MG ONCE WEEKLY, ORAL
     Route: 048
     Dates: end: 20060101
  2. CALCIMAGON (CACLIUM CARBONATE) [Concomitant]
  3. IBUPROFEN [Concomitant]
  4. CITALOPRAM HYDROBROMIDE [Concomitant]
  5. OMEPRAZOLE [Concomitant]
  6. ATORVASTATIN CALCIUM [Concomitant]

REACTIONS (3)
  - ORAL SOFT TISSUE DISORDER [None]
  - OSTEONECROSIS [None]
  - TOOTH EXTRACTION [None]
